FAERS Safety Report 4677334-9 (Version None)
Quarter: 2005Q2

REPORT INFORMATION
  Report Type: 
  Country: None (occurrence: None)
  Receive Date: 20050525
  Receipt Date: 20050525
  Transmission Date: 20051028
  Serious: Yes (Hospitalization)
  Sender: FDA-Public Use
  Company Number: None

PATIENT
  Age: 94 Year
  Sex: Female
  Weight: 95.2 kg

DRUGS (1)
  1. AMOXICILLIN [Suspect]
     Indication: DENTAL DISORDER PROPHYLAXIS
     Dosage: 2000MG   ONCE ORAL
     Route: 048
     Dates: start: 20050318, end: 20050318

REACTIONS (5)
  - ANAPHYLACTIC REACTION [None]
  - BLOOD PRESSURE DECREASED [None]
  - ERYTHEMA [None]
  - LOSS OF CONSCIOUSNESS [None]
  - URTICARIA [None]
